FAERS Safety Report 6165939-8 (Version None)
Quarter: 2009Q2

REPORT INFORMATION
  Report Type: 
  Country: None (occurrence: None)
  Receive Date: 20090422
  Receipt Date: 20090408
  Transmission Date: 20091009
  Serious: Yes (Congenital Anomaly)
  Sender: FDA-Public Use
  Company Number: 233940K09USA

PATIENT
  Sex: Female
  Weight: 4 kg

DRUGS (1)
  1. REBIF [Suspect]
     Indication: MULTIPLE SCLEROSIS
     Dates: end: 20080301

REACTIONS (3)
  - DRUG EXPOSURE DURING PREGNANCY [None]
  - GALACTOSAEMIA [None]
  - PREGNANCY [None]
